FAERS Safety Report 12426876 (Version 1)
Quarter: 2016Q2

REPORT INFORMATION
  Report Type: Spontaneous
  Country: GB (occurrence: GB)
  Receive Date: 20160601
  Receipt Date: 20160601
  Transmission Date: 20160815
  Serious: Yes (Other)
  Sender: FDA-Public Use
  Company Number: GB-ABBVIE-16P-167-1642240-00

PATIENT
  Age: 8 Year
  Sex: Female
  Weight: 24 kg

DRUGS (1)
  1. CLARITHROMYCIN. [Suspect]
     Active Substance: CLARITHROMYCIN
     Indication: PRODUCT USED FOR UNKNOWN INDICATION
     Dosage: 14 CUBIC CENTIMETER; DOSE: 125MG/ML
     Route: 065
     Dates: start: 20160323, end: 20160405

REACTIONS (3)
  - Hallucination, auditory [Recovered/Resolved]
  - Nightmare [Recovered/Resolved]
  - Tongue discolouration [Recovered/Resolved]

NARRATIVE: CASE EVENT DATE: 20160323
